FAERS Safety Report 6941879-9 (Version None)
Quarter: 2010Q3

REPORT INFORMATION
  Report Type: 
  Country: None (occurrence: None)
  Receive Date: 20100826
  Receipt Date: 20100816
  Transmission Date: 20110219
  Serious: Yes (Other)
  Sender: FDA-Public Use
  Company Number: US-PFIZER INC-2010072742

PATIENT
  Sex: Female
  Weight: 88.435 kg

DRUGS (5)
  1. LYRICA [Suspect]
     Indication: RESTLESS LEGS SYNDROME
     Dosage: 75 MG, 2X/DAY
     Route: 048
     Dates: start: 20100601, end: 20100601
  2. ZYRTEC [Concomitant]
     Dosage: UNK
  3. NAPROXEN [Concomitant]
     Dosage: 500 MG, 2X/DAY
     Route: 048
  4. NEXIUM [Concomitant]
     Dosage: UNK
  5. ORTHO TRI-CYCLEN [Concomitant]
     Dosage: UNK

REACTIONS (28)
  - ANXIETY [None]
  - ARTHRALGIA [None]
  - ASTHENIA [None]
  - ATAXIA [None]
  - CONFUSIONAL STATE [None]
  - DEPRESSED MOOD [None]
  - DISTURBANCE IN ATTENTION [None]
  - DIZZINESS [None]
  - DRY MOUTH [None]
  - EUPHORIC MOOD [None]
  - FATIGUE [None]
  - FEELING ABNORMAL [None]
  - FEELING DRUNK [None]
  - FLUID RETENTION [None]
  - GAIT DISTURBANCE [None]
  - HYPOGLYCAEMIA [None]
  - INFLUENZA LIKE ILLNESS [None]
  - MYALGIA [None]
  - NERVOUSNESS [None]
  - PLATELET COUNT DECREASED [None]
  - SOMNOLENCE [None]
  - SPEECH DISORDER [None]
  - THINKING ABNORMAL [None]
  - TREMOR [None]
  - URTICARIA [None]
  - VERTIGO [None]
  - VISION BLURRED [None]
  - VISUAL IMPAIRMENT [None]
